FAERS Safety Report 18926714 (Version 2)
Quarter: 2021Q1

REPORT INFORMATION
  Report Type: Spontaneous
  Country: KR (occurrence: KR)
  Receive Date: 20210223
  Receipt Date: 20210330
  Transmission Date: 20210420
  Serious: Yes (Other)
  Sender: FDA-Public Use
  Company Number: KR-ACCORD-218088

PATIENT
  Age: 49 Year
  Sex: Male

DRUGS (4)
  1. ISONIAZID/ISONIAZID CALCIUM PYRUVINATE/ISONIAZID SODIUM GLUCURONATE [Concomitant]
     Active Substance: ISONIAZID
     Indication: TUBERCULOSIS
  2. PYRIDOXINE [Concomitant]
     Active Substance: PYRIDOXINE
     Indication: TUBERCULOSIS
  3. AZACITIDINE. [Suspect]
     Active Substance: AZACITIDINE
     Indication: ACUTE MYELOID LEUKAEMIA
  4. SORAFENIB/SORAFENIB TOSILATE [Suspect]
     Active Substance: SORAFENIB TOSYLATE
     Indication: ACUTE MYELOID LEUKAEMIA

REACTIONS (1)
  - Hidradenitis [Recovered/Resolved]
